FAERS Safety Report 11021509 (Version 1)
Quarter: 2015Q2

REPORT INFORMATION
  Report Type: Spontaneous
  Country: US (occurrence: US)
  Receive Date: 20150413
  Receipt Date: 20150413
  Transmission Date: 20150821
  Serious: Yes (Hospitalization, Other)
  Sender: FDA-Public Use
  Company Number: US-MALLINCKRODT-T201501876

PATIENT
  Age: 14 Year
  Sex: Female

DRUGS (3)
  1. TOPAMAX [Concomitant]
     Active Substance: TOPIRAMATE
     Dosage: UNK
  2. GABLOFEN [Suspect]
     Active Substance: BACLOFEN
     Indication: MUSCLE SPASTICITY
     Dosage: 1523.9 MCG/DAY
     Route: 037
  3. CLONIDINE. [Concomitant]
     Active Substance: CLONIDINE
     Dosage: UNK

REACTIONS (6)
  - Muscle spasticity [Unknown]
  - Implant site vesicles [Recovered/Resolved]
  - Agitation [Unknown]
  - Implant site erosion [Unknown]
  - Drug withdrawal syndrome [Not Recovered/Not Resolved]
  - Central nervous system infection [Unknown]

NARRATIVE: CASE EVENT DATE: 201501
